FAERS Safety Report 15357103 (Version 1)
Quarter: 2018Q3

REPORT INFORMATION
  Report Type: Spontaneous
  Country: US (occurrence: US)
  Receive Date: 20180830
  Receipt Date: 20180830
  Transmission Date: 20181010
  Serious: No
  Sender: FDA-Public Use
  Company Number: None

PATIENT
  Age: 52 Year
  Sex: Male

DRUGS (1)
  1. MYCOPHENOLATE MOF TAB [Suspect]
     Active Substance: MYCOPHENOLATE MOFETIL
     Dates: start: 20180822

REACTIONS (3)
  - Depressed mood [None]
  - Fatigue [None]
  - Pyrexia [None]

NARRATIVE: CASE EVENT DATE: 20180828
